FAERS Safety Report 15144099 (Version 5)
Quarter: 2023Q4

REPORT INFORMATION
  Report Type: Report from Study
  Country: PL (occurrence: None)
  Receive Date: 20180713
  Receipt Date: 20231129
  Transmission Date: 20240109
  Serious: Yes (Hospitalization)
  Sender: FDA-Public Use
  Company Number: 2018SE72525

PATIENT
  Age: 80 Year
  Sex: Male

DRUGS (53)
  1. ACALABRUTINIB [Suspect]
     Active Substance: ACALABRUTINIB
     Indication: Mantle cell lymphoma
     Route: 048
     Dates: start: 20171207, end: 20180103
  2. ACALABRUTINIB [Suspect]
     Active Substance: ACALABRUTINIB
     Indication: Mantle cell lymphoma
     Route: 048
     Dates: start: 20180104, end: 20180130
  3. ACALABRUTINIB [Suspect]
     Active Substance: ACALABRUTINIB
     Indication: Mantle cell lymphoma
     Route: 048
     Dates: start: 20180131, end: 20180228
  4. ACALABRUTINIB [Suspect]
     Active Substance: ACALABRUTINIB
     Indication: Mantle cell lymphoma
     Route: 048
     Dates: start: 20180301, end: 20180328
  5. ACALABRUTINIB [Suspect]
     Active Substance: ACALABRUTINIB
     Indication: Mantle cell lymphoma
     Route: 048
     Dates: start: 20180329, end: 20180401
  6. ACALABRUTINIB [Suspect]
     Active Substance: ACALABRUTINIB
     Indication: Mantle cell lymphoma
     Route: 048
     Dates: start: 20180402, end: 20180402
  7. ACALABRUTINIB [Suspect]
     Active Substance: ACALABRUTINIB
     Indication: Mantle cell lymphoma
     Route: 048
     Dates: start: 20180426, end: 20180426
  8. ACALABRUTINIB [Suspect]
     Active Substance: ACALABRUTINIB
     Indication: Mantle cell lymphoma
     Route: 048
     Dates: start: 20180427, end: 20180502
  9. RITUXIMAB [Suspect]
     Active Substance: RITUXIMAB
     Indication: Mantle cell lymphoma
     Dosage: 649.0MG/M2 ONCE/SINGLE ADMINISTRATION
     Route: 042
     Dates: start: 20171207, end: 20171207
  10. RITUXIMAB [Suspect]
     Active Substance: RITUXIMAB
     Indication: Mantle cell lymphoma
     Dosage: 649.0MG/M2 ONCE/SINGLE ADMINISTRATION
     Route: 042
     Dates: start: 20180104, end: 20180104
  11. RITUXIMAB [Suspect]
     Active Substance: RITUXIMAB
     Indication: Mantle cell lymphoma
     Dosage: 649.0MG/M2 ONCE/SINGLE ADMINISTRATION
     Route: 042
     Dates: start: 20180131, end: 20180131
  12. RITUXIMAB [Suspect]
     Active Substance: RITUXIMAB
     Indication: Mantle cell lymphoma
     Dosage: 619.0MG/M2 ONCE/SINGLE ADMINISTRATION
     Route: 042
     Dates: start: 20180305, end: 20180305
  13. RITUXIMAB [Suspect]
     Active Substance: RITUXIMAB
     Indication: Mantle cell lymphoma
     Dosage: 592.0MG/M2 ONCE/SINGLE ADMINISTRATION
     Route: 042
     Dates: start: 20180426, end: 20180426
  14. BENDAMUSTINE [Suspect]
     Active Substance: BENDAMUSTINE
     Indication: Mantle cell lymphoma
     Dosage: 156.0MG/M2 ONCE/SINGLE ADMINISTRATION
     Route: 042
     Dates: start: 20171207, end: 20171207
  15. BENDAMUSTINE [Suspect]
     Active Substance: BENDAMUSTINE
     Indication: Mantle cell lymphoma
     Dosage: 156.0MG/M2 ONCE/SINGLE ADMINISTRATION
     Route: 042
     Dates: start: 20171208, end: 20171208
  16. BENDAMUSTINE [Suspect]
     Active Substance: BENDAMUSTINE
     Indication: Mantle cell lymphoma
     Dosage: 156.0MG/M2 ONCE/SINGLE ADMINISTRATION
     Route: 042
     Dates: start: 20180104, end: 20180104
  17. BENDAMUSTINE [Suspect]
     Active Substance: BENDAMUSTINE
     Indication: Mantle cell lymphoma
     Dosage: 156.0MG/M2 ONCE/SINGLE ADMINISTRATION
     Route: 042
     Dates: start: 20180105, end: 20180105
  18. BENDAMUSTINE [Suspect]
     Active Substance: BENDAMUSTINE
     Indication: Mantle cell lymphoma
     Dosage: 156.0MG/M2 ONCE/SINGLE ADMINISTRATION
     Route: 042
     Dates: start: 20180131, end: 20180131
  19. BENDAMUSTINE [Suspect]
     Active Substance: BENDAMUSTINE
     Indication: Mantle cell lymphoma
     Dosage: 156.0MG/M2 ONCE/SINGLE ADMINISTRATION
     Route: 042
     Dates: start: 20180201, end: 20180201
  20. BENDAMUSTINE [Suspect]
     Active Substance: BENDAMUSTINE
     Indication: Mantle cell lymphoma
     Dosage: 115.0MG/M2 ONCE/SINGLE ADMINISTRATION
     Route: 042
     Dates: start: 20180305, end: 20180305
  21. BENDAMUSTINE [Suspect]
     Active Substance: BENDAMUSTINE
     Indication: Mantle cell lymphoma
     Dosage: 115.0MG/M2 ONCE/SINGLE ADMINISTRATION
     Route: 042
     Dates: start: 20180306, end: 20180306
  22. ALLOPURINOL [Concomitant]
     Active Substance: ALLOPURINOL
     Indication: Prophylaxis
     Route: 048
     Dates: start: 20171207
  23. ACYCLOVIR [Concomitant]
     Active Substance: ACYCLOVIR
     Indication: Infection prophylaxis
     Route: 048
     Dates: start: 20180227
  24. SULFAMETHOXAZOLE\TRIMETHOPRIM [Concomitant]
     Active Substance: SULFAMETHOXAZOLE\TRIMETHOPRIM
     Indication: Infection prophylaxis
     Route: 048
     Dates: start: 20180306
  25. LACTOBACILLUS SPP [Concomitant]
     Indication: Diarrhoea
     Dosage: 1 SACHET, DAILY
     Route: 048
     Dates: start: 20180324
  26. LACTOBACILLUS SPP [Concomitant]
     Indication: Enterocolitis
     Dosage: 1 SACHET, DAILY
     Route: 048
     Dates: start: 20180324
  27. METRONIDAZOLE [Concomitant]
     Active Substance: METRONIDAZOLE
     Indication: Diarrhoea
     Route: 048
     Dates: start: 20180324, end: 20180425
  28. METRONIDAZOLE [Concomitant]
     Active Substance: METRONIDAZOLE
     Indication: Clostridium difficile colitis
     Route: 048
     Dates: start: 20180324, end: 20180425
  29. DROTAVERINE [Concomitant]
     Active Substance: DROTAVERINE
     Indication: Clostridium difficile colitis
     Route: 048
     Dates: start: 20180401, end: 20180425
  30. POTASSIUM CHLORIDE [Concomitant]
     Active Substance: POTASSIUM CHLORIDE
     Indication: Clostridium difficile colitis
     Route: 048
     Dates: start: 20180401, end: 20180425
  31. POTASSIUM CHLORIDE [Concomitant]
     Active Substance: POTASSIUM CHLORIDE
     Indication: Clostridium difficile colitis
     Route: 048
     Dates: start: 20180604, end: 20180619
  32. MEGESTROL [Concomitant]
     Active Substance: MEGESTROL
     Indication: Decreased appetite
     Route: 048
     Dates: start: 20180401, end: 20180505
  33. CLEMASTINUM WZF [Concomitant]
     Indication: Premedication
     Dosage: 2.0MG ONCE/SINGLE ADMINISTRATION
     Route: 042
     Dates: start: 20171207, end: 20171207
  34. CLEMASTINUM WZF [Concomitant]
     Indication: Premedication
     Dosage: 2.0MG ONCE/SINGLE ADMINISTRATION
     Route: 042
     Dates: start: 20180104, end: 20180104
  35. CLEMASTINUM WZF [Concomitant]
     Indication: Premedication
     Dosage: 2.0MG ONCE/SINGLE ADMINISTRATION
     Route: 048
     Dates: start: 20180131, end: 20180131
  36. CLEMASTINUM WZF [Concomitant]
     Indication: Premedication
     Dosage: 2.0MG ONCE/SINGLE ADMINISTRATION
     Route: 042
     Dates: start: 20180305, end: 20180305
  37. CLEMASTINUM WZF [Concomitant]
     Indication: Premedication
     Dosage: 2.0MG ONCE/SINGLE ADMINISTRATION
     Route: 042
     Dates: start: 20180426, end: 20180426
  38. DEXAMETHASONE [Concomitant]
     Active Substance: DEXAMETHASONE
     Indication: Premedication
     Dosage: 16.0MG ONCE/SINGLE ADMINISTRATION
     Route: 042
     Dates: start: 20171207, end: 20171207
  39. DEXAMETHASONE [Concomitant]
     Active Substance: DEXAMETHASONE
     Indication: Premedication
     Dosage: 16.0MG ONCE/SINGLE ADMINISTRATION
     Route: 042
     Dates: start: 20180104, end: 20180104
  40. DEXAMETHASONE [Concomitant]
     Active Substance: DEXAMETHASONE
     Indication: Premedication
     Dosage: 16.0MG ONCE/SINGLE ADMINISTRATION
     Route: 042
     Dates: start: 20180131, end: 20180131
  41. DEXAMETHASONE [Concomitant]
     Active Substance: DEXAMETHASONE
     Indication: Premedication
     Dosage: 16.0MG ONCE/SINGLE ADMINISTRATION
     Route: 042
     Dates: start: 20180305, end: 20180305
  42. DEXAMETHASONE [Concomitant]
     Active Substance: DEXAMETHASONE
     Indication: Premedication
     Dosage: 8.0MG ONCE/SINGLE ADMINISTRATION
     Route: 042
     Dates: start: 20180402, end: 20180414
  43. DEXAMETHASONE [Concomitant]
     Active Substance: DEXAMETHASONE
     Indication: Premedication
     Dosage: 16.0MG ONCE/SINGLE ADMINISTRATION
     Route: 042
     Dates: start: 20180426, end: 20180426
  44. ONDANSETRON [Concomitant]
     Active Substance: ONDANSETRON
     Indication: Premedication
     Route: 042
     Dates: start: 20171207, end: 20171208
  45. ONDANSETRON [Concomitant]
     Active Substance: ONDANSETRON
     Indication: Premedication
     Route: 042
     Dates: start: 20180104, end: 20180105
  46. ONDANSETRON [Concomitant]
     Active Substance: ONDANSETRON
     Indication: Premedication
     Route: 042
     Dates: start: 20180131, end: 20180201
  47. ONDANSETRON [Concomitant]
     Active Substance: ONDANSETRON
     Indication: Premedication
     Route: 042
     Dates: start: 20180305, end: 20180306
  48. ONDANSETRON [Concomitant]
     Active Substance: ONDANSETRON
     Indication: Premedication
     Dosage: 8.0MG ONCE/SINGLE ADMINISTRATION
     Route: 042
     Dates: start: 20180426, end: 20180426
  49. ACETAMINOPHEN [Concomitant]
     Active Substance: ACETAMINOPHEN
     Indication: Premedication
     Dosage: 1.0G ONCE/SINGLE ADMINISTRATION
     Route: 042
     Dates: start: 20171207, end: 20171207
  50. ACETAMINOPHEN [Concomitant]
     Active Substance: ACETAMINOPHEN
     Indication: Premedication
     Dosage: 1.0G ONCE/SINGLE ADMINISTRATION
     Route: 042
     Dates: start: 20180104, end: 20180104
  51. ACETAMINOPHEN [Concomitant]
     Active Substance: ACETAMINOPHEN
     Indication: Premedication
     Dosage: 1.0G ONCE/SINGLE ADMINISTRATION
     Route: 042
     Dates: start: 20180131, end: 20180131
  52. ACETAMINOPHEN [Concomitant]
     Active Substance: ACETAMINOPHEN
     Indication: Premedication
     Dosage: 1.0G ONCE/SINGLE ADMINISTRATION
     Route: 042
     Dates: start: 20180305, end: 20180305
  53. ACETAMINOPHEN [Concomitant]
     Active Substance: ACETAMINOPHEN
     Indication: Premedication
     Dosage: 1.0G ONCE/SINGLE ADMINISTRATION
     Route: 042
     Dates: start: 20180426, end: 20180426

REACTIONS (1)
  - Clostridium difficile colitis [Recovered/Resolved]

NARRATIVE: CASE EVENT DATE: 20180506
